FAERS Safety Report 9848787 (Version 1)
Quarter: 2014Q1

REPORT INFORMATION
  Report Type: Spontaneous
  Country: US (occurrence: None)
  Receive Date: 20140127
  Receipt Date: 20140127
  Transmission Date: 20141002
  Serious: Yes (Other)
  Sender: FDA-Public Use
  Company Number: None

PATIENT
  Age: 11 Year
  Sex: Female
  Weight: 34.02 kg

DRUGS (3)
  1. ABILIFY [Suspect]
     Indication: AUTISM
     Dosage: 1/2 TABLET
     Route: 048
  2. ABILIFY [Suspect]
     Indication: AFFECT LABILITY
     Dosage: 1/2 TABLET
     Route: 048
  3. ABILIFY [Suspect]
     Indication: IRRITABILITY
     Dosage: 1/2 TABLET
     Route: 048

REACTIONS (1)
  - Weight increased [None]
